FAERS Safety Report 14238832 (Version 1)
Quarter: 2017Q4

REPORT INFORMATION
  Report Type: Spontaneous
  Country: AR (occurrence: AR)
  Receive Date: 20171130
  Receipt Date: 20171130
  Transmission Date: 20180321
  Serious: Yes (Hospitalization)
  Sender: FDA-Public Use
  Company Number: PHHY2017AR168189

PATIENT
  Age: 80 Year
  Sex: Female

DRUGS (2)
  1. LOTENSIN [Concomitant]
     Active Substance: BENAZEPRIL HYDROCHLORIDE
     Indication: PRODUCT USED FOR UNKNOWN INDICATION
     Route: 065
  2. PLOSTIM [Suspect]
     Active Substance: TIMOLOL MALEATE
     Indication: INTRAOCULAR PRESSURE INCREASED
     Dosage: 2 GTT, BID
     Route: 047

REACTIONS (9)
  - Pain [Unknown]
  - Epistaxis [Recovered/Resolved]
  - Fear [Unknown]
  - Eye irritation [Unknown]
  - Nervousness [Unknown]
  - Eye pain [Unknown]
  - Hypertension [Recovered/Resolved]
  - Asthenia [Unknown]
  - Incorrect dose administered [Unknown]
